FAERS Safety Report 10555489 (Version 2)
Quarter: 2015Q2

REPORT INFORMATION
  Report Type: Other
  Country: DE (occurrence: DE)
  Receive Date: 20141030
  Receipt Date: 20150603
  Transmission Date: 20150821
  Serious: Yes (Hospitalization)
  Sender: FDA-Public Use
  Company Number: DE-MYLANLABS-2014M1008311

PATIENT

DRUGS (6)
  1. LYRICA [Concomitant]
     Active Substance: PREGABALIN
     Dosage: 50 MG, QD (DAILY DOSE: 50 MG MILLGRAM(S) EVERY DAYS)
     Route: 048
  2. RAMIPRIL. [Concomitant]
     Active Substance: RAMIPRIL
     Dosage: 1.25 MG, QD (DAILY DOSE: 1.25 MG MILLGRAM(S) EVERY DAYS)
     Route: 048
  3. CEFUROXIM [Concomitant]
     Active Substance: CEFUROXIME
     Indication: INTERVERTEBRAL DISCITIS
     Dosage: 250 MG, TID (DAILY DOSE: 750 MG MILLGRAM(S) EVERY DAYS)
     Route: 048
     Dates: start: 201406, end: 20141008
  4. BISOPROLOL [Concomitant]
     Active Substance: BISOPROLOL
     Dosage: 5 MG, QD (DAILY DOSE: 5 MG MILLGRAM(S) EVERY DAYS)
     Route: 048
  5. NOVAMINSULFON [Concomitant]
     Active Substance: METAMIZOLE
     Dosage: 500 MG, TID (DAILY DOSE: 1500 MG MILLGRAM(S) EVERY DAYS)
     Route: 048
  6. CLINDAMYCIN [Suspect]
     Active Substance: CLINDAMYCIN\CLINDAMYCIN PHOSPHATE
     Indication: INTERVERTEBRAL DISCITIS
     Dosage: 300 MG, TID (DAILY DOSE: 900 MG MILLGRAM(S) EVERY DAYS)
     Route: 048
     Dates: start: 201406, end: 20141008

REACTIONS (3)
  - Anaemia [Not Recovered/Not Resolved]
  - Thrombocytopenia [Not Recovered/Not Resolved]
  - Leukopenia [Not Recovered/Not Resolved]

NARRATIVE: CASE EVENT DATE: 20141007
